FAERS Safety Report 21445936 (Version 1)
Quarter: 2022Q4

REPORT INFORMATION
  Report Type: Spontaneous
  Country: US (occurrence: US)
  Receive Date: 20221012
  Receipt Date: 20221012
  Transmission Date: 20230113
  Serious: No
  Sender: FDA-Public Use
  Company Number: US-BEH-2022150468

PATIENT
  Sex: Female

DRUGS (7)
  1. HAEGARDA [Suspect]
     Active Substance: HUMAN C1-ESTERASE INHIBITOR
     Indication: Hereditary angioedema
     Dosage: 2000 INTERNATIONAL UNIT, EVERY 3 DAYS
     Route: 058
     Dates: start: 20180321
  2. HAEGARDA [Suspect]
     Active Substance: HUMAN C1-ESTERASE INHIBITOR
     Indication: Prophylaxis
  3. CINRYZE [Concomitant]
     Active Substance: HUMAN C1-ESTERASE INHIBITOR
  4. FIRAZYR [Concomitant]
     Active Substance: ICATIBANT ACETATE
  5. ICATIBANT [Concomitant]
     Active Substance: ICATIBANT ACETATE
  6. VITAMINS NOS [Concomitant]
     Active Substance: VITAMINS
  7. SERTRALINE [Concomitant]
     Active Substance: SERTRALINE HYDROCHLORIDE

REACTIONS (1)
  - Injection site erythema [Recovered/Resolved]
